FAERS Safety Report 8515107-7 (Version None)
Quarter: 2012Q3

REPORT INFORMATION
  Report Type: 
  Country: None (occurrence: None)
  Receive Date: 20120717
  Receipt Date: 20120711
  Transmission Date: 20120928
  Serious: Yes (Other)
  Sender: FDA-Public Use
  Company Number: US-PFIZER INC-2012167040

PATIENT
  Sex: Female
  Weight: 104.3 kg

DRUGS (1)
  1. PREMARIN [Suspect]
     Indication: HORMONE REPLACEMENT THERAPY
     Dosage: UNK, 1X/DAY
     Route: 048
     Dates: start: 19600101, end: 20060101

REACTIONS (6)
  - OSTEOARTHRITIS [None]
  - FIBROMA [None]
  - MENORRHAGIA [None]
  - CARDIAC DISORDER [None]
  - MIGRAINE [None]
  - SINUS ARRHYTHMIA [None]
